FAERS Safety Report 10185685 (Version 1)
Quarter: 2014Q2

REPORT INFORMATION
  Report Type: Spontaneous
  Country: US (occurrence: US)
  Receive Date: 20140521
  Receipt Date: 20140521
  Transmission Date: 20141212
  Serious: Yes (Other)
  Sender: FDA-Public Use
  Company Number: US-ASTRAZENECA-2014SE33537

PATIENT
  Sex: Male

DRUGS (2)
  1. TOPROL-XL [Suspect]
     Indication: BLOOD PRESSURE
     Route: 048
  2. TOPROL-XL [Suspect]
     Indication: BLOOD PRESSURE
     Route: 048

REACTIONS (2)
  - Arrhythmia [Unknown]
  - Adverse event [Unknown]
